FAERS Safety Report 8879947 (Version 1)
Quarter: 2012Q4

REPORT INFORMATION
  Report Type: 
  Country: BR (occurrence: BR)
  Receive Date: 20121031
  Receipt Date: 20121031
  Transmission Date: 20130627
  Serious: Yes (Other)
  Sender: FDA-Public Use
  Company Number: BR-B.I. PHARMACEUTICALS,INC./RIDGEFIELD-2012-EU-05418GD

PATIENT

DRUGS (3)
  1. BISACODYL [Suspect]
     Dosage: 20 anz
     Route: 048
  2. FENOTEROL [Suspect]
     Dosage: 1 bottle
  3. IPRATROPIUM BROMIDE [Suspect]
     Dosage: 1 bottle

REACTIONS (1)
  - Suicide attempt [Unknown]
